FAERS Safety Report 8925891 (Version 4)
Quarter: 2013Q2

REPORT INFORMATION
  Report Type: Report from Study
  Country: US (occurrence: US)
  Receive Date: 20121126
  Receipt Date: 20130507
  Transmission Date: 20140414
  Serious: Yes (Other)
  Sender: FDA-Public Use
  Company Number: PHEH2012US022794

PATIENT
  Age: 37 Year
  Sex: Female
  Weight: 61.68 kg

DRUGS (2)
  1. GILENYA [Suspect]
     Indication: RELAPSING-REMITTING MULTIPLE SCLEROSIS
     Dosage: 0.5 MG, QD
     Route: 048
     Dates: start: 20110726
  2. VALIUM [Concomitant]

REACTIONS (10)
  - Vein disorder [Unknown]
  - Nervousness [Unknown]
  - Multiple sclerosis [Unknown]
  - Gait disturbance [Unknown]
  - Joint lock [Unknown]
  - Muscular weakness [Unknown]
  - Nocturia [Unknown]
  - Weight decreased [Unknown]
  - Nystagmus [Unknown]
  - Hypoaesthesia [Unknown]
